FAERS Safety Report 11001851 (Version 1)
Quarter: 2015Q2

REPORT INFORMATION
  Report Type: Spontaneous
  Country: US (occurrence: US)
  Receive Date: 20150408
  Receipt Date: 20150408
  Transmission Date: 20150821
  Serious: Yes (Death, Other)
  Sender: FDA-Public Use
  Company Number: US-ASTRAZENECA-2015SE31205

PATIENT
  Age: 23376 Day
  Sex: Male

DRUGS (21)
  1. ZESTRIL [Concomitant]
     Active Substance: LISINOPRIL
     Dates: start: 20010318
  2. GLYBURIDE. [Concomitant]
     Active Substance: GLYBURIDE
     Dates: start: 20020731
  3. GABAPENTIN. [Concomitant]
     Active Substance: GABAPENTIN
     Dates: start: 20101014
  4. DITROPAN XL [Concomitant]
     Active Substance: OXYBUTYNIN CHLORIDE
     Dates: start: 20031013
  5. AVANDIA [Concomitant]
     Active Substance: ROSIGLITAZONE MALEATE
     Dates: start: 20040624
  6. FUROSEMIDE. [Concomitant]
     Active Substance: FUROSEMIDE
     Dates: start: 20041207
  7. ZETIA [Concomitant]
     Active Substance: EZETIMIBE
     Dates: start: 20070710
  8. DIOVAN [Concomitant]
     Active Substance: VALSARTAN
     Indication: CARDIAC FAILURE CHRONIC
     Dates: start: 20100616
  9. XOPENEX [Concomitant]
     Active Substance: LEVALBUTEROL HYDROCHLORIDE
     Dates: start: 20081016
  10. BYETTA [Suspect]
     Active Substance: EXENATIDE
     Indication: DIABETES MELLITUS
     Route: 065
     Dates: start: 20081016
  11. PLAVIX [Concomitant]
     Active Substance: CLOPIDOGREL BISULFATE
     Dates: start: 20041207
  12. CELEXA [Concomitant]
     Active Substance: CITALOPRAM HYDROBROMIDE
     Dates: start: 20010318
  13. WELLBUTRIN [Concomitant]
     Active Substance: BUPROPION HYDROCHLORIDE
     Dates: start: 20010514
  14. OMEPRAZOLE. [Concomitant]
     Active Substance: OMEPRAZOLE
     Dates: start: 20100616
  15. METFORMIN/GLUCOPHAGE [Concomitant]
     Dates: start: 20020226
  16. ZOCOR [Concomitant]
     Active Substance: SIMVASTATIN
     Dates: start: 20041207
  17. LORAZEPAM. [Concomitant]
     Active Substance: LORAZEPAM
     Dates: start: 20041207
  18. LIPITOR [Concomitant]
     Active Substance: ATORVASTATIN CALCIUM
     Dates: start: 20061215
  19. DIOVAN [Concomitant]
     Active Substance: VALSARTAN
     Indication: HYPERTENSION
     Dates: start: 20100616
  20. BYETTA [Suspect]
     Active Substance: EXENATIDE
     Indication: DIABETES MELLITUS
     Route: 065
     Dates: start: 20070524
  21. INSPRA [Concomitant]
     Active Substance: EPLERENONE
     Indication: DIURETIC THERAPY
     Dates: start: 20050331

REACTIONS (6)
  - Pancreatic carcinoma [Fatal]
  - Acute kidney injury [Fatal]
  - Pancreatitis [None]
  - Acute hepatic failure [Fatal]
  - Jaundice cholestatic [Unknown]
  - Pancreatic duct dilatation [Unknown]

NARRATIVE: CASE EVENT DATE: 20100216
